FAERS Safety Report 19769542 (Version 1)
Quarter: 2021Q3

REPORT INFORMATION
  Report Type: Spontaneous
  Country: DK (occurrence: DK)
  Receive Date: 20210831
  Receipt Date: 20210831
  Transmission Date: 20211014
  Serious: Yes (Life-Threatening, Hospitalization)
  Sender: FDA-Public Use
  Company Number: DK-LUPIN PHARMACEUTICALS INC.-2021-16107

PATIENT
  Age: 9 Year
  Sex: Male

DRUGS (6)
  1. NADOLOL. [Suspect]
     Active Substance: NADOLOL
     Indication: VENTRICULAR TACHYCARDIA
     Dosage: UNK
     Route: 065
  2. MAGNESIUM SULPHATE [Suspect]
     Active Substance: MAGNESIUM SULFATE
     Indication: VENTRICULAR ARRHYTHMIA
     Dosage: UNK
     Route: 065
  3. METOPROLOL. [Suspect]
     Active Substance: METOPROLOL
     Indication: VENTRICULAR ARRHYTHMIA
     Dosage: UNK
     Route: 065
  4. METOPROLOL. [Suspect]
     Active Substance: METOPROLOL
     Indication: VENTRICULAR TACHYCARDIA
  5. METOPROLOL. [Suspect]
     Active Substance: METOPROLOL
     Indication: VENTRICULAR FIBRILLATION
  6. LIDOCAINE. [Suspect]
     Active Substance: LIDOCAINE
     Indication: VENTRICULAR ARRHYTHMIA
     Dosage: UNK
     Route: 065

REACTIONS (1)
  - Therapy non-responder [Unknown]
